FAERS Safety Report 16738761 (Version 1)
Quarter: 2019Q3

REPORT INFORMATION
  Report Type: Spontaneous
  Country: US (occurrence: US)
  Receive Date: 20190826
  Receipt Date: 20190826
  Transmission Date: 20191005
  Serious: No
  Sender: FDA-Public Use
  Company Number: US-009507513-1908USA008667

PATIENT
  Sex: Female

DRUGS (4)
  1. AZELASTINE HYDROCHLORIDE. [Suspect]
     Active Substance: AZELASTINE HYDROCHLORIDE
     Indication: HYPERSENSITIVITY
     Dosage: UNK UNK, BID
     Route: 045
     Dates: start: 20190522
  2. FLUTICASONE. [Suspect]
     Active Substance: FLUTICASONE
     Indication: HYPERSENSITIVITY
     Dosage: UNK, QD
     Route: 045
     Dates: start: 20190522
  3. SINGULAIR [Suspect]
     Active Substance: MONTELUKAST SODIUM
     Indication: HYPERSENSITIVITY
     Dosage: 1 DOSAGE FORM, QD (1 PILL AT NIGHT BEFORE BEDTIME)
     Route: 048
     Dates: start: 20190522
  4. CHLORASEPTIC (PHENOL) [Concomitant]
     Indication: THROAT IRRITATION
     Dosage: 2 DOSAGE FORM, QD (MORNING AND NIGHT)

REACTIONS (5)
  - Cough [Unknown]
  - Product quality issue [Unknown]
  - Throat irritation [Recovered/Resolved]
  - Lower respiratory tract congestion [Unknown]
  - Pharyngitis [Unknown]

NARRATIVE: CASE EVENT DATE: 2019
